FAERS Safety Report 18206836 (Version 1)
Quarter: 2020Q3

REPORT INFORMATION
  Report Type: Spontaneous
  Country: CA (occurrence: CA)
  Receive Date: 20200828
  Receipt Date: 20200828
  Transmission Date: 20201103
  Serious: Yes (Hospitalization)
  Sender: FDA-Public Use
  Company Number: CA-ACCORD-197472

PATIENT
  Age: 72 Year
  Sex: Male

DRUGS (5)
  1. PREGABALIN. [Concomitant]
     Active Substance: PREGABALIN
  2. BUDESONIDE. [Concomitant]
     Active Substance: BUDESONIDE
  3. MORPHINE [Concomitant]
     Active Substance: MORPHINE
  4. DOCETAXEL. [Suspect]
     Active Substance: DOCETAXEL
     Indication: LUNG NEOPLASM MALIGNANT
     Dosage: DOSAGE FORM: SOLUTION INTRAVENOUS
     Route: 042
  5. SENNA ALEXANDRINA [Concomitant]
     Active Substance: SENNA LEAF

REACTIONS (1)
  - Neutropenic colitis [Unknown]
